FAERS Safety Report 18131619 (Version 1)
Quarter: 2020Q3

REPORT INFORMATION
  Report Type: Spontaneous
  Country: US (occurrence: US)
  Receive Date: 20200810
  Receipt Date: 20200810
  Transmission Date: 20201103
  Serious: No
  Sender: FDA-Public Use
  Company Number: US-PERRIGO-17US025254

PATIENT
  Sex: Female

DRUGS (9)
  1. INAPSINE [Suspect]
     Active Substance: DROPERIDOL
     Indication: NAUSEA
     Dosage: UNKNOWN, UNKNOWN
     Route: 065
  2. TIGAN [Suspect]
     Active Substance: TRIMETHOBENZAMIDE HYDROCHLORIDE
     Indication: NAUSEA
     Dosage: UNKNOWN, UNKNOWN
     Route: 065
  3. DROPERIDOL. [Suspect]
     Active Substance: DROPERIDOL
     Indication: NAUSEA
     Dosage: UNKNOWN, UNKNOWN
     Route: 065
  4. PHENADOZ [Suspect]
     Active Substance: PROMETHAZINE HYDROCHLORIDE
     Indication: NAUSEA
     Dosage: UNKNOWN, UNKNOWN
     Route: 065
  5. PROMETHAZINE HYDROCHLORIDE. [Suspect]
     Active Substance: PROMETHAZINE HYDROCHLORIDE
     Indication: NAUSEA
     Dosage: UNKNOWN, UNKNOWN
     Route: 065
  6. PHENERGAN [Suspect]
     Active Substance: PROMETHAZINE HYDROCHLORIDE
     Indication: NAUSEA
     Dosage: UNKNOWN, UNKNOWN
     Route: 065
  7. COMPRO [Suspect]
     Active Substance: PROCHLORPERAZINE
     Indication: NAUSEA
     Dosage: UNKNOWN, UNKNOWN
     Route: 054
  8. COMPAZINE                          /00013302/ [Suspect]
     Active Substance: PROCHLORPERAZINE EDISYLATE
     Indication: NAUSEA
     Dosage: UNKNOWN, UNKNOWN
     Route: 065
  9. PROMETHEGAN [Suspect]
     Active Substance: PROMETHAZINE HYDROCHLORIDE
     Indication: NAUSEA
     Dosage: UNKNOWN, UNKNOWN
     Route: 065

REACTIONS (1)
  - Dystonia [Unknown]
